FAERS Safety Report 15034313 (Version 1)
Quarter: 2018Q2

REPORT INFORMATION
  Report Type: Spontaneous
  Country: GB (occurrence: GB)
  Receive Date: 20180620
  Receipt Date: 20180620
  Transmission Date: 20180711
  Serious: Yes (Other)
  Sender: FDA-Public Use
  Company Number: GB-UCBSA-2018027523

PATIENT
  Age: 65 Year
  Sex: Male

DRUGS (1)
  1. CIMZIA [Suspect]
     Active Substance: CERTOLIZUMAB PEGOL
     Indication: PRODUCT USED FOR UNKNOWN INDICATION
     Dosage: 600 MG, WEEKLY (QW)
     Route: 058
     Dates: end: 20180314

REACTIONS (2)
  - Inappropriate schedule of drug administration [Unknown]
  - Pityriasis rubra pilaris [Unknown]

NARRATIVE: CASE EVENT DATE: 20180201
